FAERS Safety Report 16231081 (Version 1)
Quarter: 2019Q2

REPORT INFORMATION
  Report Type: Spontaneous
  Country: US (occurrence: US)
  Receive Date: 20190423
  Receipt Date: 20190423
  Transmission Date: 20190711
  Serious: No
  Sender: FDA-Public Use
  Company Number: US-AMGEN-USASP2019062359

PATIENT
  Sex: Male

DRUGS (1)
  1. SENSIPAR [Suspect]
     Active Substance: CINACALCET HYDROCHLORIDE
     Indication: HYPOTENSION
     Dosage: 30 MILLIGRAM, QD
     Route: 065

REACTIONS (2)
  - Blood pressure abnormal [Unknown]
  - Off label use [Unknown]
